FAERS Safety Report 5110756-0 (Version None)
Quarter: 2006Q3

REPORT INFORMATION
  Report Type: 
  Country: None (occurrence: None)
  Receive Date: 20060731
  Receipt Date: 20060630
  Transmission Date: 20061208
  Serious: No
  Sender: FDA-Public Use
  Company Number: 2006PV016749

PATIENT
  Age: 50 Year
  Sex: Female

DRUGS (2)
  1. BYETTA [Suspect]
     Indication: DIABETES MELLITUS NON-INSULIN-DEPENDENT
     Dosage: 10 MCG;UNKNOWN;SC
     Route: 058
     Dates: start: 20060601, end: 20060601
  2. METFORMIN HCL [Concomitant]

REACTIONS (1)
  - MEDICATION ERROR [None]
